FAERS Safety Report 23895667 (Version 1)
Quarter: 2024Q2

REPORT INFORMATION
  Report Type: Spontaneous
  Country: US (occurrence: None)
  Receive Date: 20240523
  Receipt Date: 20240523
  Transmission Date: 20240716
  Serious: Yes (Hospitalization)
  Sender: FDA-Public Use
  Company Number: None

PATIENT
  Age: 47 Year
  Sex: Female

DRUGS (2)
  1. GLEOSTINE [Suspect]
     Active Substance: LOMUSTINE
     Indication: Brain neoplasm malignant
     Dosage: FREQUENCY : ONCE;?
     Route: 048
     Dates: start: 202402
  2. GLEOSTINE [Suspect]
     Active Substance: LOMUSTINE
     Indication: Brain neoplasm malignant
     Dosage: FREQUENCY : ONCE;?
     Route: 048
     Dates: start: 202402

REACTIONS (6)
  - Blood glucose increased [None]
  - Lethargy [None]
  - Anger [None]
  - Pollakiuria [None]
  - Fall [None]
  - Diabetic ketoacidosis [None]

NARRATIVE: CASE EVENT DATE: 20240302
